FAERS Safety Report 20445978 (Version 1)
Quarter: 2022Q1

REPORT INFORMATION
  Report Type: Spontaneous
  Country: US (occurrence: US)
  Receive Date: 20220208
  Receipt Date: 20220208
  Transmission Date: 20220423
  Serious: Yes (Other)
  Sender: FDA-Public Use
  Company Number: US-PFIZER INC-202200144602

PATIENT
  Sex: Female

DRUGS (1)
  1. EXEMESTANE [Suspect]
     Active Substance: EXEMESTANE
     Dosage: 25 MG

REACTIONS (7)
  - Tooth loss [Unknown]
  - Off label use [Unknown]
  - Intentional product misuse [Unknown]
  - Muscle spasms [Unknown]
  - Pain in extremity [Unknown]
  - Bone density decreased [Unknown]
  - Quality of life decreased [Unknown]
